FAERS Safety Report 11422768 (Version 1)
Quarter: 2015Q3

REPORT INFORMATION
  Report Type: Spontaneous
  Country: US (occurrence: None)
  Receive Date: 20150826
  Receipt Date: 20150826
  Transmission Date: 20151125
  Serious: No
  Sender: FDA-Public Use
  Company Number: None

PATIENT
  Age: 72 Year
  Sex: Female
  Weight: 74.84 kg

DRUGS (5)
  1. ENALAPRIL [Concomitant]
     Active Substance: ENALAPRIL
  2. WATSON 853 HYDROCODONE/ACETAMINO 10MG/325MG ACTAVIS [Suspect]
     Active Substance: ACETAMINOPHEN\HYDROCODONE
     Indication: METASTATIC PAIN
     Route: 048
     Dates: start: 20150820, end: 20150825
  3. SYNTHROID [Concomitant]
     Active Substance: LEVOTHYROXINE SODIUM
  4. HYDROCODONE [Concomitant]
     Active Substance: HYDROCODONE
  5. MULTI VIT/MIN [Concomitant]

REACTIONS (14)
  - Product substitution issue [None]
  - Yawning [None]
  - Asthenia [None]
  - Inadequate analgesia [None]
  - Chills [None]
  - Fatigue [None]
  - Product quality issue [None]
  - Blood pressure increased [None]
  - Headache [None]
  - Drug withdrawal syndrome [None]
  - Sneezing [None]
  - Insomnia [None]
  - Cough [None]
  - Muscle spasms [None]

NARRATIVE: CASE EVENT DATE: 20150820
